FAERS Safety Report 7809182-2 (Version None)
Quarter: 2011Q4

REPORT INFORMATION
  Report Type: 
  Country: None (occurrence: None)
  Receive Date: 20111012
  Receipt Date: 20111003
  Transmission Date: 20120403
  Serious: Yes (Hospitalization, Other)
  Sender: FDA-Public Use
  Company Number: US-SANOFI-AVENTIS-2011SA064490

PATIENT
  Sex: Female

DRUGS (2)
  1. SOLOSTAR [Suspect]
     Dates: start: 20100101
  2. LANTUS [Suspect]
     Dosage: DOSE:60 UNIT(S)
     Route: 058

REACTIONS (3)
  - FOOT FRACTURE [None]
  - TOE AMPUTATION [None]
  - FALL [None]
